FAERS Safety Report 7639587-4 (Version None)
Quarter: 2011Q3

REPORT INFORMATION
  Report Type: 
  Country: None (occurrence: None)
  Receive Date: 20110727
  Receipt Date: 20110721
  Transmission Date: 20111222
  Serious: Yes (Hospitalization, Other)
  Sender: FDA-Public Use
  Company Number: FI-ABBOTT-11P-055-0840855-00

PATIENT
  Sex: Female

DRUGS (9)
  1. CALCIUM CARBONATE/CHOLECALCIFEROL [Concomitant]
     Indication: OSTEOPENIA
  2. ACID FOLIC [Concomitant]
     Indication: PRODUCT USED FOR UNKNOWN INDICATION
  3. PREDNISOLONE [Concomitant]
     Indication: PRODUCT USED FOR UNKNOWN INDICATION
  4. IBANDRONATE SODIUM MONOHYDRATE [Concomitant]
     Indication: SUPPLEMENTATION THERAPY
  5. LEFLUNOMIDE [Concomitant]
     Indication: PRODUCT USED FOR UNKNOWN INDICATION
  6. METHOTREXATE [Concomitant]
     Indication: PRODUCT USED FOR UNKNOWN INDICATION
  7. ATORVASTATIN CALCIUM [Concomitant]
     Indication: PRODUCT USED FOR UNKNOWN INDICATION
  8. HUMIRA [Suspect]
     Indication: RHEUMATOID ARTHRITIS
     Route: 058
     Dates: start: 20080304
  9. RISEDRONATE SODIUM [Concomitant]
     Indication: OSTEOPENIA

REACTIONS (8)
  - OEDEMA PERIPHERAL [None]
  - HIP ARTHROPLASTY [None]
  - HEADACHE [None]
  - INTRACRANIAL VENOUS SINUS THROMBOSIS [None]
  - JOINT DISLOCATION [None]
  - THROMBOSIS [None]
  - ANTIPHOSPHOLIPID ANTIBODIES POSITIVE [None]
  - DEEP VEIN THROMBOSIS [None]
